FAERS Safety Report 4641303-5 (Version None)
Quarter: 2005Q2

REPORT INFORMATION
  Report Type: 
  Country: None (occurrence: None)
  Receive Date: 20050419
  Receipt Date: 20050408
  Transmission Date: 20051028
  Serious: Yes (Hospitalization)
  Sender: FDA-Public Use
  Company Number: 04P-056-0273543-00

PATIENT
  Age: 56 Year
  Sex: Female

DRUGS (14)
  1. NORVIR [Suspect]
     Indication: HIV INFECTION
     Dosage: 200 MG, 2 IN 1 D, PER ORAL
     Route: 048
     Dates: start: 20040301, end: 20040406
  2. NORVIR [Suspect]
     Indication: HIV INFECTION
     Dosage: 200 MG, 2 IN 1 D, PER ORAL
     Route: 048
     Dates: start: 20040503
  3. TIPRANAVIR [Concomitant]
  4. CLARITHROMYCIN [Concomitant]
  5. ENFUVIRTIDE [Concomitant]
  6. RIFABUTIN [Concomitant]
  7. ETHAMBUTOL HCL [Concomitant]
  8. CARVEDILOL [Concomitant]
  9. RAMIPRIL [Concomitant]
  10. OMEPRAZOLE [Concomitant]
  11. MACROGOL [Concomitant]
  12. FUROSEMIDE [Concomitant]
  13. HEPARIN CALCIUM [Concomitant]
  14. PREDNISONE TAB [Concomitant]

REACTIONS (8)
  - ANTI-HBC ANTIBODY POSITIVE [None]
  - ANTI-HBS ANTIBODY POSITIVE [None]
  - BRAIN HERNIATION [None]
  - CEREBRAL HAEMATOMA [None]
  - CEREBRAL HAEMORRHAGE [None]
  - COMA [None]
  - HEPATITIS B SURFACE ANTIGEN POSITIVE [None]
  - ORAL CANDIDIASIS [None]
